FAERS Safety Report 4419469-1 (Version None)
Quarter: 2004Q3

REPORT INFORMATION
  Report Type: 
  Country: None (occurrence: None)
  Receive Date: 20040809
  Receipt Date: 20040205
  Transmission Date: 20050211
  Serious: No
  Sender: FDA-Public Use
  Company Number: US-GLAXOSMITHKLINE-A0496757A

PATIENT
  Age: 51 Year
  Sex: Female

DRUGS (3)
  1. PAXIL [Suspect]
     Indication: ILL-DEFINED DISORDER
     Dosage: 5MG PER DAY
     Route: 048
     Dates: start: 20040130, end: 20040130
  2. PAXIL CR [Suspect]
     Indication: ILL-DEFINED DISORDER
     Dosage: 12.5MG UNKNOWN
     Route: 048
     Dates: start: 20040101
  3. KLONOPIN [Concomitant]

REACTIONS (4)
  - BALANCE DISORDER [None]
  - DIZZINESS [None]
  - FEELING DRUNK [None]
  - INSOMNIA [None]
